FAERS Safety Report 9684827 (Version 3)
Quarter: 2013Q4

REPORT INFORMATION
  Report Type: Report from Study
  Country: JP (occurrence: JP)
  Receive Date: 20131112
  Receipt Date: 20131203
  Transmission Date: 20140711
  Serious: Yes (Other)
  Sender: FDA-Public Use
  Company Number: PHHY2013JP128623

PATIENT
  Age: 56 Year
  Sex: Female

DRUGS (2)
  1. LEPONEX / CLOZARIL [Suspect]
     Indication: SCHIZOPHRENIA
     Dosage: UNK UKN, UNK
     Route: 048
     Dates: start: 20131031, end: 20131104
  2. LEUCON [Concomitant]
     Dosage: 10 MG, DAILY
     Dates: start: 20131031, end: 20131104

REACTIONS (3)
  - Cholecystitis [Recovering/Resolving]
  - Pyrexia [Unknown]
  - Pyelonephritis [Unknown]
